FAERS Safety Report 19675044 (Version 1)
Quarter: 2021Q3

REPORT INFORMATION
  Report Type: Spontaneous
  Country: US (occurrence: US)
  Receive Date: 20210809
  Receipt Date: 20210809
  Transmission Date: 20211014
  Serious: No
  Sender: FDA-Public Use
  Company Number: US-ROCHE-2746947

PATIENT
  Sex: Male
  Weight: 68.1 kg

DRUGS (7)
  1. ROZLYTREK [Suspect]
     Active Substance: ENTRECTINIB
     Indication: METASTASES TO CENTRAL NERVOUS SYSTEM
     Dosage: 2 CAPSULES BY MOUTH
     Route: 048
     Dates: start: 20190705
  2. ZOLPIDEM [Concomitant]
     Active Substance: ZOLPIDEM TARTRATE
     Route: 048
     Dates: start: 20190703, end: 20190708
  3. ROZLYTREK [Suspect]
     Active Substance: ENTRECTINIB
     Dosage: 2 CAPSULES BY MOUTH
     Route: 048
     Dates: start: 20201111, end: 20201111
  4. ALBUTEROL SULFATE. [Concomitant]
     Active Substance: ALBUTEROL SULFATE
     Dates: start: 20201202
  5. FOLIC ACID. [Concomitant]
     Active Substance: FOLIC ACID
     Route: 048
     Dates: start: 20190708
  6. LEVOTHYROXINE. [Concomitant]
     Active Substance: LEVOTHYROXINE
     Route: 048
     Dates: start: 20200824
  7. PIOGLITAZONE HCL [Concomitant]
     Active Substance: PIOGLITAZONE
     Route: 048
     Dates: start: 20201202

REACTIONS (3)
  - Insomnia [Unknown]
  - Product dose omission issue [Unknown]
  - Product use in unapproved indication [Unknown]
